FAERS Safety Report 16121219 (Version 1)
Quarter: 2019Q1

REPORT INFORMATION
  Report Type: Spontaneous
  Country: FR (occurrence: FR)
  Receive Date: 20190327
  Receipt Date: 20190327
  Transmission Date: 20190418
  Serious: Yes (Hospitalization)
  Sender: FDA-Public Use
  Company Number: FR-TEVA-2019-FR-1029057

PATIENT
  Age: 70 Year
  Sex: Female

DRUGS (8)
  1. RANITIDINE BASE [Suspect]
     Active Substance: RANITIDINE HYDROCHLORIDE
     Indication: PREMEDICATION
     Dosage: 150 MILLIGRAM DAILY;
     Route: 048
     Dates: start: 20190109, end: 20190109
  2. SETOFILM 8 MG, FILM ORODISPERSIBLE [Concomitant]
     Active Substance: ONDANSETRON
     Dosage: 1 DOSAGE FORMS DAILY;
     Route: 048
     Dates: start: 20190109, end: 20190109
  3. CISPLATINE MYLAN [Suspect]
     Active Substance: CISPLATIN
     Indication: OVARIAN CANCER
     Dosage: 71 MILLIGRAM DAILY;
     Route: 042
     Dates: start: 20190214, end: 20190214
  4. CARBOPLATINE KABI [Suspect]
     Active Substance: CARBOPLATIN
     Indication: OVARIAN CANCER
     Route: 042
     Dates: start: 20181115, end: 20190124
  5. SOLUPRED [Concomitant]
     Dosage: 40 MILLIGRAM DAILY;
     Route: 048
     Dates: start: 20190109, end: 20190109
  6. PACLITAXEL KABI [Concomitant]
     Active Substance: PACLITAXEL
     Indication: OVARIAN CANCER
     Route: 042
     Dates: start: 20181115
  7. LEVOCETIRIZINE (DICHLORHYDRATE DE) [Concomitant]
     Dosage: 5 MILLIGRAM DAILY;
     Route: 048
     Dates: start: 20190109, end: 20190109
  8. METHYLPREDNISOLONE. [Concomitant]
     Active Substance: METHYLPREDNISOLONE
     Indication: PREMEDICATION
     Dosage: 40 MILLIGRAM DAILY;
     Route: 048
     Dates: start: 20190109, end: 20190109

REACTIONS (3)
  - Hypotension [Recovered/Resolved]
  - Pyrexia [Recovered/Resolved]
  - Back pain [Recovered/Resolved]

NARRATIVE: CASE EVENT DATE: 20190110
